FAERS Safety Report 4389227-5 (Version None)
Quarter: 2004Q2

REPORT INFORMATION
  Report Type: 
  Country: None (occurrence: None)
  Receive Date: 20040628
  Receipt Date: 20040615
  Transmission Date: 20050107
  Serious: Yes (Hospitalization)
  Sender: FDA-Public Use
  Company Number: S04-USA-03014-01

PATIENT
  Age: 89 Year
  Sex: Female

DRUGS (8)
  1. NAMENDA [Suspect]
     Indication: DEMENTIA ALZHEIMER'S TYPE
     Dosage: 10 MG BID PO
     Route: 048
     Dates: end: 20040420
  2. NAMENDA [Suspect]
     Indication: DEMENTIA ALZHEIMER'S TYPE
     Dates: start: 20040305
  3. AGGRENOX [Suspect]
     Dosage: 1 MG BID
     Dates: start: 20040305, end: 20040419
  4. LEXAPRO [Concomitant]
  5. ARICEPT [Concomitant]
  6. IRON PRODUCT (NOS) [Concomitant]
  7. PLAVIX [Concomitant]
  8. ASPIRIN [Concomitant]

REACTIONS (25)
  - AORTIC ANEURYSM [None]
  - BLADDER DIVERTICULUM [None]
  - BLOOD ALBUMIN DECREASED [None]
  - BLOOD PRESSURE SYSTOLIC INCREASED [None]
  - CARDIOMEGALY [None]
  - CATARACT [None]
  - CITROBACTER INFECTION [None]
  - COMA [None]
  - CULTURE URINE POSITIVE [None]
  - CYSTITIS [None]
  - CYSTITIS NONINFECTIVE [None]
  - DIVERTICULUM [None]
  - EFFUSION [None]
  - FAECAL OCCULT BLOOD POSITIVE [None]
  - GLOSSITIS [None]
  - HEPATIC CYST [None]
  - HYPOGLYCAEMIA [None]
  - LETHARGY [None]
  - LUNG HYPERINFLATION [None]
  - RALES [None]
  - RENAL CYST [None]
  - SCOLIOSIS [None]
  - SPLENIC CYST [None]
  - STAPHYLOCOCCAL INFECTION [None]
  - URINARY TRACT INFECTION ENTEROCOCCAL [None]
